FAERS Safety Report 9883707 (Version 1)
Quarter: 2014Q1

REPORT INFORMATION
  Report Type: Spontaneous
  Country: US (occurrence: US)
  Receive Date: 20140210
  Receipt Date: 20140210
  Transmission Date: 20141002
  Serious: No
  Sender: FDA-Public Use
  Company Number: US-009507513-1402USA002972

PATIENT
  Age: 26 Year
  Sex: Female
  Weight: 67.57 kg

DRUGS (3)
  1. NUVARING [Suspect]
     Indication: CONTRACEPTION
     Dosage: UNK, THREE WEEKS IN ONE WEEK RING FREE BREAK
     Route: 067
     Dates: start: 20130121
  2. NUVARING [Suspect]
     Indication: POLYCYSTIC OVARIES
  3. KLONOPIN [Concomitant]

REACTIONS (3)
  - Menorrhagia [Unknown]
  - Metrorrhagia [Unknown]
  - Menstruation normal [Unknown]
